FAERS Safety Report 9789861 (Version 1)
Quarter: 2013Q4

REPORT INFORMATION
  Report Type: Spontaneous
  Country: US (occurrence: None)
  Receive Date: 20131227
  Receipt Date: 20131227
  Transmission Date: 20140711
  Serious: Yes (Other)
  Sender: FDA-Public Use
  Company Number: 2013P1022062

PATIENT
  Age: 60 Year
  Sex: Male

DRUGS (2)
  1. DURAMORPH [Suspect]
     Indication: PAIN
  2. DURAMORPH [Suspect]
     Indication: BACK PAIN

REACTIONS (4)
  - Asthenia [None]
  - Muscle spasms [None]
  - Insomnia [None]
  - Device alarm issue [None]
